FAERS Safety Report 7624175-6 (Version None)
Quarter: 2011Q3

REPORT INFORMATION
  Report Type: 
  Country: None (occurrence: None)
  Receive Date: 20110720
  Receipt Date: 20110720
  Transmission Date: 20111222
  Serious: Yes (Hospitalization)
  Sender: FDA-Public Use
  Company Number: None

PATIENT
  Age: 88 Year
  Sex: Female
  Weight: 61.234 kg

DRUGS (2)
  1. AMOXIL [Suspect]
     Indication: PROPHYLAXIS
     Dosage: 875
     Route: 048
     Dates: start: 20110622, end: 20110622
  2. AMOXIL [Suspect]
     Indication: ENDODONTIC PROCEDURE
     Dosage: 875
     Route: 048
     Dates: start: 20110622, end: 20110622

REACTIONS (3)
  - NO REACTION ON PREVIOUS EXPOSURE TO DRUG [None]
  - DEHYDRATION [None]
  - ABDOMINAL DISCOMFORT [None]
